FAERS Safety Report 16217972 (Version 2)
Quarter: 2019Q2

REPORT INFORMATION
  Report Type: Report from Study
  Country: IL (occurrence: IL)
  Receive Date: 20190419
  Receipt Date: 20190523
  Transmission Date: 20190711
  Serious: Yes (Hospitalization)
  Sender: FDA-Public Use
  Company Number: IL-IPSEN BIOPHARMACEUTICALS, INC.-2019-06413

PATIENT
  Age: 79 Year
  Sex: Male

DRUGS (7)
  1. JARDIANCE [Concomitant]
     Active Substance: EMPAGLIFLOZIN
     Indication: DIABETES MELLITUS
  2. TOUJEO [Concomitant]
     Active Substance: INSULIN GLARGINE
     Dosage: 10 UNITS IN THE MORNING
  3. SOMATULINE AUTOGEL 120MG [Suspect]
     Active Substance: LANREOTIDE ACETATE
     Indication: NEUROENDOCRINE TUMOUR
     Route: 065
     Dates: start: 20160808
  4. TRITACE [Concomitant]
     Active Substance: RAMIPRIL
     Indication: HYPERTENSION
     Dosage: IN EVENING
  5. OMEPRADEX [Concomitant]
     Active Substance: OMEPRAZOLE
  6. ASPIRIN. [Concomitant]
     Active Substance: ASPIRIN
     Dosage: AT NOON
  7. SIMVASTATIN. [Concomitant]
     Active Substance: SIMVASTATIN

REACTIONS (5)
  - Muscular weakness [Recovered/Resolved]
  - Limb discomfort [Recovered/Resolved]
  - Hyperhidrosis [Recovered/Resolved]
  - Abdominal pain [Recovered/Resolved]
  - Chest discomfort [Recovered/Resolved]

NARRATIVE: CASE EVENT DATE: 20190411
